FAERS Safety Report 9438228 (Version 2)
Quarter: 2014Q1

REPORT INFORMATION
  Report Type: Spontaneous
  Country: US (occurrence: US)
  Receive Date: 20130802
  Receipt Date: 20140110
  Transmission Date: 20141002
  Serious: Yes (Hospitalization)
  Sender: FDA-Public Use
  Company Number: US-B.I. PHARMACEUTICALS,INC./RIDGEFIELD-2013-BI-23028BP

PATIENT
  Age: 79 Year
  Sex: Male
  Weight: 83.91 kg

DRUGS (8)
  1. PRADAXA [Suspect]
     Indication: ATRIAL FIBRILLATION
     Dosage: 300 MG
     Dates: start: 20110415, end: 20120421
  2. IMDUR [Concomitant]
     Dosage: 30 MG
  3. ASPIRIN [Concomitant]
     Dosage: 81 MG
  4. HYDRALAZINE [Concomitant]
     Dosage: 75 MG
  5. SIMVASTATIN [Concomitant]
     Dosage: 20 MG
  6. METOPROLOL [Concomitant]
     Dosage: 200 MG
  7. LASIX [Concomitant]
     Dosage: 200 MG
  8. PERCOCET [Concomitant]

REACTIONS (1)
  - Intraventricular haemorrhage [Unknown]
